FAERS Safety Report 15149123 (Version 1)
Quarter: 2018Q3

REPORT INFORMATION
  Report Type: Spontaneous
  Country: DE (occurrence: DE)
  Receive Date: 20180716
  Receipt Date: 20180716
  Transmission Date: 20181010
  Serious: Yes (Life-Threatening, Hospitalization, Other)
  Sender: FDA-Public Use
  Company Number: DE-JUBILANT CADISTA PHARMACEUTICALS-2018JUB00271

PATIENT
  Age: 24 Year
  Sex: Female

DRUGS (2)
  1. CITALOPRAM [Suspect]
     Active Substance: CITALOPRAM HYDROBROMIDE
     Route: 048
  2. PIPAMPERONE [Suspect]
     Active Substance: PIPAMPERONE
     Route: 048

REACTIONS (5)
  - Ventricular fibrillation [Recovered/Resolved]
  - Suicide attempt [Recovered/Resolved]
  - Metabolic disorder [Unknown]
  - Seizure [Recovered/Resolved]
  - Long QT syndrome [Recovered/Resolved]
